FAERS Safety Report 12081991 (Version 1)
Quarter: 2016Q1

REPORT INFORMATION
  Report Type: Spontaneous
  Country: US (occurrence: US)
  Receive Date: 20160216
  Receipt Date: 20160216
  Transmission Date: 20160526
  Serious: No
  Sender: FDA-Public Use
  Company Number: US-009507513-1602USA007337

PATIENT
  Age: 71 Year
  Sex: Female

DRUGS (23)
  1. BUMEX [Concomitant]
     Active Substance: BUMETANIDE
  2. GABAPENTIN. [Concomitant]
     Active Substance: GABAPENTIN
  3. JANUMET [Suspect]
     Active Substance: METFORMIN HYDROCHLORIDE\SITAGLIPTIN PHOSPHATE
     Indication: DIABETES MELLITUS
     Dosage: 1 TABLET, TWICE A DAY
     Route: 048
     Dates: start: 20151218
  4. FENOFIBRATE. [Concomitant]
     Active Substance: FENOFIBRATE
  5. MELATONIN [Concomitant]
     Active Substance: MELATONIN
  6. HYDROCODONE [Concomitant]
     Active Substance: HYDROCODONE
  7. DOCOSAHEXAENOIC ACID [Concomitant]
     Active Substance: DOCONEXENT
  8. METOPROLOL. [Concomitant]
     Active Substance: METOPROLOL
  9. CYMBALTA [Concomitant]
     Active Substance: DULOXETINE HYDROCHLORIDE
  10. ISOSORBIDE MONONITRATE. [Concomitant]
     Active Substance: ISOSORBIDE MONONITRATE
     Route: 048
  11. MAGNESIUM (UNSPECIFIED) [Concomitant]
     Active Substance: MAGNESIUM
  12. PROTONIX [Concomitant]
     Active Substance: PANTOPRAZOLE SODIUM
  13. ROBAXIN [Concomitant]
     Active Substance: METHOCARBAMOL
  14. CALCIUM CITRATE [Concomitant]
     Active Substance: CALCIUM CITRATE
  15. ENALAPRIL MALEATE. [Concomitant]
     Active Substance: ENALAPRIL MALEATE
     Route: 048
  16. CENTRUM (MINERALS (UNSPECIFIED) (+) VITAMINS (UNSPECIFIED)) [Concomitant]
  17. ECOTRIN [Concomitant]
     Active Substance: ASPIRIN
  18. ATORVASTATIN [Concomitant]
     Active Substance: ATORVASTATIN
  19. COUMADIN [Concomitant]
     Active Substance: WARFARIN SODIUM
  20. JANUMET [Concomitant]
     Active Substance: METFORMIN HYDROCHLORIDE\SITAGLIPTIN PHOSPHATE
     Dosage: UNK
     Route: 048
     Dates: start: 2015, end: 20151218
  21. K-LOR [Concomitant]
  22. DIGOXIN. [Concomitant]
     Active Substance: DIGOXIN
  23. AMBIEN [Concomitant]
     Active Substance: ZOLPIDEM TARTRATE

REACTIONS (6)
  - Frequent bowel movements [Not Recovered/Not Resolved]
  - Diarrhoea [Not Recovered/Not Resolved]
  - Flatulence [Not Recovered/Not Resolved]
  - Anal incontinence [Not Recovered/Not Resolved]
  - Glycosylated haemoglobin decreased [Not Recovered/Not Resolved]
  - Blood cholesterol increased [Not Recovered/Not Resolved]

NARRATIVE: CASE EVENT DATE: 201512
